FAERS Safety Report 17710157 (Version 1)
Quarter: 2020Q2

REPORT INFORMATION
  Report Type: Spontaneous
  Country: DE (occurrence: DE)
  Receive Date: 20200427
  Receipt Date: 20200427
  Transmission Date: 20200714
  Serious: Yes (Hospitalization)
  Sender: FDA-Public Use
  Company Number: DE-SA-2020SA106348

PATIENT
  Age: 85 Year
  Sex: Male

DRUGS (15)
  1. ULTIBRO BREEZHALER [Concomitant]
     Active Substance: GLYCOPYRRONIUM\INDACATEROL
     Dosage: 1-0-0-0
     Route: 055
  2. FORMATRIS [Concomitant]
     Active Substance: FORMOTEROL FUMARATE
     Dosage: BEDARF
  3. PREDNISOLON [PREDNISOLONE] [Concomitant]
     Active Substance: PREDNISOLONE
     Dosage: 20 MG, 1-0-0-0
  4. RAMIPRIL. [Suspect]
     Active Substance: RAMIPRIL
     Dosage: 2.5 MG, 1-0-0-0
  5. PANTOPRAZOLE [Concomitant]
     Active Substance: PANTOPRAZOLE
     Dosage: 40 MG, 1-0-0-0
  6. SALBUTAMOL [Concomitant]
     Active Substance: ALBUTEROL
     Dosage: UNK UNK, PRN
  7. APIDRA [Suspect]
     Active Substance: INSULIN GLULISINE
     Dosage: AS PER SCHEMA
     Route: 058
  8. TOUJEO [Suspect]
     Active Substance: INSULIN GLARGINE
     Dosage: 46 IU, QD (0-0-46-0)
  9. TORASEMIDE [Suspect]
     Active Substance: TORSEMIDE
     Dosage: 20 MG, 1-1-0-0
  10. BUFORI EASYHALER [Concomitant]
     Active Substance: BUDESONIDE\FORMOTEROL FUMARATE
     Dosage: 2-0-2-0
     Route: 055
  11. DAXAS [Concomitant]
     Active Substance: ROFLUMILAST
     Dosage: 1-0-0-0
  12. MARCUMAR [Concomitant]
     Active Substance: PHENPROCOUMON
     Dosage: ACCORDING TO INR
  13. ZOPICLON [Concomitant]
     Active Substance: ZOPICLONE
     Dosage: 7.5 MG, BEDARF
  14. MELPERON [Concomitant]
     Active Substance: MELPERONE
     Dosage: 25 MG, 1-0-0-2
  15. CAPROS [Concomitant]
     Dosage: 10 MG, 1-0-0-0

REACTIONS (10)
  - Oedema peripheral [Unknown]
  - General physical health deterioration [Unknown]
  - Chest pain [Unknown]
  - Hypotension [Unknown]
  - Somnolence [Unknown]
  - Tachycardia [Unknown]
  - Pain [Unknown]
  - Hypoglycaemia [Unknown]
  - Localised infection [Unknown]
  - Cold sweat [Unknown]
